FAERS Safety Report 15094361 (Version 1)
Quarter: 2018Q2

REPORT INFORMATION
  Report Type: Spontaneous
  Country: GB (occurrence: GB)
  Receive Date: 20180630
  Receipt Date: 20180630
  Transmission Date: 20180711
  Serious: Yes (Other)
  Sender: FDA-Public Use
  Company Number: GB-AUROBINDO-AUR-APL-2018-033263

PATIENT
  Age: 86 Year
  Sex: Male
  Weight: 93.07 kg

DRUGS (1)
  1. AMOXICILLIN CAPSULE [Suspect]
     Active Substance: AMOXICILLIN
     Indication: GINGIVAL ABSCESS
     Dosage: UNK
     Route: 065
     Dates: start: 20180416, end: 20180417

REACTIONS (5)
  - Haematochezia [Recovered/Resolved]
  - Apparent death [Unknown]
  - Asthenia [Unknown]
  - Tremor [Unknown]
  - Constipation [Unknown]

NARRATIVE: CASE EVENT DATE: 20180416
